FAERS Safety Report 9118931 (Version 4)
Quarter: 2013Q3

REPORT INFORMATION
  Report Type: Spontaneous
  Country: DE (occurrence: DE)
  Receive Date: 20130226
  Receipt Date: 20130925
  Transmission Date: 20140515
  Serious: Yes (Disabling, Other)
  Sender: FDA-Public Use
  Company Number: PHHY2013DE017824

PATIENT
  Age: 70 Year
  Sex: Female

DRUGS (3)
  1. GLIVEC [Suspect]
     Indication: CHRONIC MYELOID LEUKAEMIA
     Dosage: 200 MG, BID
     Route: 048
     Dates: start: 2000
  2. GLIVEC [Suspect]
     Dosage: 200 MG, BID
     Route: 048
  3. GLIVEC [Suspect]
     Dosage: 200 MG, BID
     Route: 048
     Dates: end: 201303

REACTIONS (9)
  - Skin cancer [Unknown]
  - Breast cancer [Unknown]
  - Second primary malignancy [Unknown]
  - Pelvic fracture [Unknown]
  - Angina pectoris [Recovered/Resolved]
  - Myalgia [Recovering/Resolving]
  - Sensation of pressure [Recovering/Resolving]
  - Arthralgia [Recovering/Resolving]
  - Nausea [Unknown]
